FAERS Safety Report 4445909-8 (Version None)
Quarter: 2004Q3

REPORT INFORMATION
  Report Type: 
  Country: None (occurrence: None)
  Receive Date: 20040907
  Receipt Date: 20040823
  Transmission Date: 20050211
  Serious: No
  Sender: FDA-Public Use
  Company Number: 2004-BP-06914NB

PATIENT
  Age: 77 Year
  Sex: Male

DRUGS (1)
  1. MOBIC [Suspect]
     Dosage: 10 MG PO
     Route: 048
     Dates: start: 20040804, end: 20040807

REACTIONS (4)
  - DYSPHAGIA [None]
  - SPEECH DISORDER [None]
  - SWOLLEN TONGUE [None]
  - TONGUE DISORDER [None]
